FAERS Safety Report 26032627 (Version 1)
Quarter: 2025Q4

REPORT INFORMATION
  Report Type: Spontaneous
  Country: CN (occurrence: CN)
  Receive Date: 20251112
  Receipt Date: 20251112
  Transmission Date: 20260118
  Serious: Yes (Other)
  Sender: NOVARTIS
  Company Number: CN-002147023-NVSC2025CN171924

PATIENT
  Age: 72 Year
  Sex: Female
  Weight: 56 kg

DRUGS (1)
  1. SACUBITRIL\VALSARTAN [Suspect]
     Active Substance: SACUBITRIL\VALSARTAN
     Indication: Essential hypertension
     Dosage: 200 MG, BID
     Route: 048
     Dates: start: 20251021, end: 20251023

REACTIONS (9)
  - Angioedema [Recovering/Resolving]
  - Pruritus [Recovering/Resolving]
  - Erythema [Unknown]
  - Skin swelling [Unknown]
  - Scratch [Unknown]
  - Oedema [Unknown]
  - Hypotension [Recovering/Resolving]
  - Blood pressure increased [Unknown]
  - Dizziness [Unknown]

NARRATIVE: CASE EVENT DATE: 20251023
